FAERS Safety Report 7564373-3 (Version None)
Quarter: 2011Q2

REPORT INFORMATION
  Report Type: 
  Country: None (occurrence: None)
  Receive Date: 20110622
  Receipt Date: 20110609
  Transmission Date: 20111010
  Serious: Yes (Hospitalization, Other)
  Sender: FDA-Public Use
  Company Number: PHHY2011MX51413

PATIENT
  Sex: Male

DRUGS (4)
  1. AFINITOR [Suspect]
     Dates: start: 20110401
  2. AFINITOR [Suspect]
     Indication: RENAL CANCER
     Dates: start: 20101001, end: 20110301
  3. TRICYCLIC ANTIDEPRESSANTS [Concomitant]
  4. DRUG THERAPY NOS [Concomitant]
     Indication: RENAL CANCER

REACTIONS (4)
  - DRUG RESISTANCE [None]
  - NEOPLASM MALIGNANT [None]
  - COLONIC OBSTRUCTION [None]
  - MALAISE [None]
